FAERS Safety Report 6216459-3 (Version None)
Quarter: 2009Q2

REPORT INFORMATION
  Report Type: 
  Country: None (occurrence: None)
  Receive Date: 20090603
  Receipt Date: 20090603
  Transmission Date: 20091009
  Serious: Yes (Life-Threatening, Other)
  Sender: FDA-Public Use
  Company Number: None

PATIENT
  Sex: Female
  Weight: 63.5036 kg

DRUGS (2)
  1. PRISTIQ [Suspect]
     Indication: DEPRESSION
     Dosage: 50 MGM ONCE DAILY ORAL APPROX. 9 WEEKS
     Route: 048
  2. YASMIN [Concomitant]

REACTIONS (5)
  - ACNE [None]
  - CYST [None]
  - DERMATITIS ACNEIFORM [None]
  - NO THERAPEUTIC RESPONSE [None]
  - ROSACEA [None]
